FAERS Safety Report 7050367-3 (Version None)
Quarter: 2010Q4

REPORT INFORMATION
  Report Type: 
  Country: None (occurrence: None)
  Receive Date: 20101018
  Receipt Date: 20101012
  Transmission Date: 20110411
  Serious: Yes (Hospitalization, Other)
  Sender: FDA-Public Use
  Company Number: GB-ABBOTT-10P-167-0665290-00

PATIENT
  Age: 65 Year
  Sex: Male

DRUGS (2)
  1. CLARITHROMYCIN [Suspect]
     Indication: PRODUCT USED FOR UNKNOWN INDICATION
  2. CLARITHROMYCIN [Suspect]

REACTIONS (7)
  - DYSPNOEA [None]
  - GLOMERULONEPHRITIS MINIMAL LESION [None]
  - OEDEMA PERIPHERAL [None]
  - PNEUMONITIS [None]
  - PYREXIA [None]
  - RASH PRURITIC [None]
  - TUBULOINTERSTITIAL NEPHRITIS [None]
